FAERS Safety Report 20165370 (Version 1)
Quarter: 2021Q4

REPORT INFORMATION
  Report Type: Spontaneous
  Country: GB (occurrence: None)
  Receive Date: 20211209
  Receipt Date: 20211209
  Transmission Date: 20220303
  Serious: Yes (Other)
  Sender: FDA-Public Use
  Company Number: 2021A852306

PATIENT
  Age: 73 Year
  Sex: Male
  Weight: 129 kg

DRUGS (9)
  1. DAPAGLIFLOZIN [Suspect]
     Active Substance: DAPAGLIFLOZIN
     Dosage: 10 EVERY DAY
     Route: 048
     Dates: start: 20210901
  2. ADIZEM [Concomitant]
     Active Substance: DILTIAZEM HYDROCHLORIDE
     Dosage: 1 EVERY DAY
  3. EPLERENONE [Concomitant]
     Active Substance: EPLERENONE
     Dosage: 1 EVERY DAY
     Dates: start: 20210426
  4. FUROSEMIDE [Concomitant]
     Active Substance: FUROSEMIDE
     Indication: Fluid retention
     Dosage: 1 ONE MORNING AS REQUIRED (PRN) FOR FLUID OVERLOAD
     Dates: start: 20200408
  5. LOSARTAN [Concomitant]
     Active Substance: LOSARTAN
     Dosage: 1 EVERY DAY
     Dates: start: 20190610
  6. RIVAROXABAN [Concomitant]
     Active Substance: RIVAROXABAN
     Dosage: 1 EVERY DAY
     Dates: start: 20190610
  7. METFORMIN HYDROCHLORIDE [Concomitant]
     Active Substance: METFORMIN HYDROCHLORIDE
     Dosage: 2 EVERY DAY WITH MAIN MEAL
     Dates: start: 20210426
  8. TAMSULOSIN HYDROCHLORIDE [Concomitant]
     Active Substance: TAMSULOSIN HYDROCHLORIDE
     Dosage: 1 IN THE MORNING
     Dates: start: 20190610
  9. UNSPECIFIED INGREDIENT [Concomitant]
     Active Substance: UNSPECIFIED INGREDIENT
     Dosage: ON DOAC FOR INFO ONLY
     Dates: start: 20190801

REACTIONS (2)
  - Dizziness [Recovered/Resolved]
  - Fatigue [Unknown]

NARRATIVE: CASE EVENT DATE: 20210914
